FAERS Safety Report 7429041-7 (Version None)
Quarter: 2011Q1

REPORT INFORMATION
  Report Type: 
  Country: None (occurrence: None)
  Receive Date: 20110329
  Receipt Date: 20110207
  Transmission Date: 20110831
  Serious: No
  Sender: FDA-Public Use
  Company Number: 20110207CINRY1802

PATIENT
  Age: 51 Year
  Sex: Male

DRUGS (6)
  1. FISH OIL (FISH OIL) [Concomitant]
  2. CINRYZE [Suspect]
     Indication: PROPHYLAXIS
     Dosage: (1500 MG,1 IN 1 4),INTRAVENOUS
     Route: 042
     Dates: start: 20100901
  3. CINRYZE [Suspect]
     Indication: HEREDITARY ANGIOEDEMA
     Dosage: (1500 MG,1 IN 1 4),INTRAVENOUS
     Route: 042
     Dates: start: 20100901
  4. VITAMIN E [Concomitant]
  5. DANAZOL [Suspect]
     Indication: HEREDITARY ANGIOEDEMA
     Dosage: 800 MG (800 MG,1 IN 1 D)
     Dates: start: 20010101
  6. TRIAD ALCOHOL PREP PAD(ETHANOL) [Suspect]
     Indication: THERAPEUTIC SKIN CARE TOPICAL

REACTIONS (5)
  - PRODUCT QUALITY ISSUE [None]
  - APPLICATION SITE ERYTHEMA [None]
  - INFUSION SITE ERYTHEMA [None]
  - PRODUCT CONTAMINATION [None]
  - DIARRHOEA [None]
